FAERS Safety Report 9619482 (Version 2)
Quarter: 2013Q4

REPORT INFORMATION
  Report Type: Report from Study
  Country: US (occurrence: US)
  Receive Date: 20131014
  Receipt Date: 20131028
  Transmission Date: 20140711
  Serious: Yes (Hospitalization)
  Sender: FDA-Public Use
  Company Number: US-ACTELION-A-NJ2013-89596

PATIENT
  Age: 49 Year
  Sex: Male

DRUGS (4)
  1. TRACLEER [Suspect]
     Indication: COR PULMONALE CHRONIC
     Dosage: UNK
     Route: 048
  2. FLOLAN [Concomitant]
  3. REMODULIN [Concomitant]
  4. ADCIRCA [Concomitant]

REACTIONS (1)
  - Cholecystectomy [Unknown]
